FAERS Safety Report 20880244 (Version 1)
Quarter: 2022Q2

REPORT INFORMATION
  Report Type: Spontaneous
  Country: US (occurrence: None)
  Receive Date: 20220526
  Receipt Date: 20220526
  Transmission Date: 20220721
  Serious: Yes (Other)
  Sender: FDA-Public Use
  Company Number: None

PATIENT
  Sex: Female

DRUGS (1)
  1. LEVOPHED [Suspect]
     Active Substance: NOREPINEPHRINE BITARTRATE

REACTIONS (5)
  - Cardio-respiratory arrest [None]
  - Blood pressure increased [None]
  - Device occlusion [None]
  - Drug dose omission by device [None]
  - Device information output issue [None]

NARRATIVE: CASE EVENT DATE: 20220524
